FAERS Safety Report 9124949 (Version 1)
Quarter: 2013Q1

REPORT INFORMATION
  Report Type: Spontaneous
  Country: FR (occurrence: FR)
  Receive Date: 20130121
  Receipt Date: 20130121
  Transmission Date: 20140127
  Serious: Yes (Hospitalization)
  Sender: FDA-Public Use
  Company Number: FR-VERTEX PHARMACEUTICALS INC.-2013-000857

PATIENT
  Age: 48 Year
  Sex: Male

DRUGS (7)
  1. INCIVO [Suspect]
     Indication: PRODUCT USED FOR UNKNOWN INDICATION
     Dosage: DOSAGE FORM: TABLET
     Route: 048
     Dates: start: 20121009, end: 20121023
  2. PEGASYS [Suspect]
     Indication: PRODUCT USED FOR UNKNOWN INDICATION
     Dosage: DOSAGE FORM: SOLUTION FOR INJECTION
     Route: 058
     Dates: start: 20121009, end: 20121023
  3. COPEGUS [Suspect]
     Indication: PRODUCT USED FOR UNKNOWN INDICATION
     Dosage: DOSAGE FORM: COATED TABLET
     Route: 048
     Dates: start: 20121009, end: 20121023
  4. REYATAZ [Concomitant]
     Dosage: DOSAGE FORM: CAPSULE
     Route: 048
     Dates: start: 20121026
  5. REYATAZ [Concomitant]
     Dosage: DOSAGE FORM: CAPSULE
     Route: 048
     Dates: end: 20121023
  6. TRUVADA [Concomitant]
     Dosage: DOSAGE FORM: CAPSULE
     Route: 048
     Dates: start: 20121026
  7. TRUVADA [Concomitant]
     Dosage: DOSAGE FORM: CAPSULE
     Route: 048
     Dates: end: 20121023

REACTIONS (1)
  - Renal failure acute [Recovered/Resolved]
